FAERS Safety Report 5236303-0 (Version None)
Quarter: 2007Q1

REPORT INFORMATION
  Report Type: 
  Country: None (occurrence: None)
  Receive Date: 20061208
  Receipt Date: 20050209
  Transmission Date: 20070707
  Serious: Yes (Other)
  Sender: FDA-Public Use
  Company Number: 2005UW02274

PATIENT
  Age: 58 Year
  Sex: Female

DRUGS (11)
  1. CRESTOR [Suspect]
     Dosage: 10 MG PO
     Route: 048
     Dates: start: 20040301, end: 20040401
  2. CRESTOR [Suspect]
     Dosage: 20 MG DAILY PO
     Route: 048
     Dates: start: 20040401, end: 20040501
  3. ADVICOR [Concomitant]
  4. ZOCOR [Concomitant]
  5. PREMARIN [Concomitant]
  6. ACTOS [Concomitant]
  7. ALLEGRA [Concomitant]
  8. PROPOXYPHENE NAPSYLATE AND ACETAMINOPHEN [Concomitant]
  9. GLUCOPHAGE - SLOW RELEASE [Concomitant]
  10. ATENOLOL [Concomitant]
  11. GLUCOTROL XL [Concomitant]

REACTIONS (5)
  - BACK PAIN [None]
  - MYALGIA [None]
  - OSTEOARTHRITIS [None]
  - RHABDOMYOLYSIS [None]
  - TENDONITIS [None]
